FAERS Safety Report 17736720 (Version 1)
Quarter: 2020Q2

REPORT INFORMATION
  Report Type: Spontaneous
  Country: US (occurrence: US)
  Receive Date: 20200501
  Receipt Date: 20200501
  Transmission Date: 20200714
  Serious: Yes (Other)
  Sender: FDA-Public Use
  Company Number: US-AUROBINDO-AUR-APL-2020-020687

PATIENT
  Age: 18 Year
  Sex: Male

DRUGS (15)
  1. KEPPRA [Concomitant]
     Active Substance: LEVETIRACETAM
     Indication: PETIT MAL EPILEPSY
     Dosage: 1000 MILLIGRAM, TWO TIMES A DAY
     Route: 065
  2. DRONABINOL. [Concomitant]
     Active Substance: DRONABINOL
     Indication: ADJUVANT THERAPY
     Dosage: UNK
     Route: 065
  3. HYDROCODONE [Suspect]
     Active Substance: HYDROCODONE
     Indication: NEURALGIA
     Dosage: UNK
     Route: 065
  4. LIDOCAINE. [Concomitant]
     Active Substance: LIDOCAINE
     Indication: PAIN
     Dosage: UNK
     Route: 061
  5. GABAPENTIN. [Suspect]
     Active Substance: GABAPENTIN
     Indication: ALLODYNIA
  6. METHADONE [Suspect]
     Active Substance: METHADONE HYDROCHLORIDE
     Indication: NEURALGIA
     Dosage: 25 MILLIGRAM, 3 TIMES A DAY
     Route: 065
  7. GABAPENTIN. [Suspect]
     Active Substance: GABAPENTIN
     Indication: NEURALGIA
     Dosage: 900 MILLIGRAM, 3 TIMES A DAY
     Route: 065
  8. OXYCODONE [Suspect]
     Active Substance: OXYCODONE
     Indication: NEURALGIA
     Dosage: 60 MILLIGRAM EVERY 2-3 HOURS
     Route: 065
  9. DULOXETINE. [Concomitant]
     Active Substance: DULOXETINE
     Indication: NEURALGIA
     Dosage: 30 MILLIGRAM, DAILY
     Route: 065
  10. MORPHINE [Suspect]
     Active Substance: MORPHINE
     Dosage: 60 MILLIGRAM, 3 TIMES A DAY
     Route: 065
  11. DULOXETINE. [Concomitant]
     Active Substance: DULOXETINE
     Dosage: 60 MILLIGRAM, DAILY
     Route: 065
  12. AMITRIPTYLINE [Concomitant]
     Active Substance: AMITRIPTYLINE
     Indication: NEURALGIA
     Dosage: 100 MILLIGRAM AT BEDTIME
     Route: 065
  13. DEXAMETHASONE. [Concomitant]
     Active Substance: DEXAMETHASONE
     Indication: PRODUCT USED FOR UNKNOWN INDICATION
     Dosage: 3 MILLIGRAM, 3 TIMES A DAY
     Route: 065
  14. MORPHINE [Suspect]
     Active Substance: MORPHINE
     Indication: NEURALGIA
     Dosage: 30 MILLIGRAM, 3 TIMES A DAY
     Route: 065
  15. MORPHINE [Suspect]
     Active Substance: MORPHINE
     Dosage: MILLIGRAM EQUIVALENTS (MME) EQUALED 900 MG PLUS 75 MG METHADONE DAILY
     Route: 065

REACTIONS (6)
  - Haemothorax [Unknown]
  - Drug ineffective [Unknown]
  - Off label use [Unknown]
  - Fall [Unknown]
  - Petit mal epilepsy [Unknown]
  - Rib fracture [Unknown]
